FAERS Safety Report 19440740 (Version 1)
Quarter: 2021Q2

REPORT INFORMATION
  Report Type: Spontaneous
  Country: BR (occurrence: BR)
  Receive Date: 20210621
  Receipt Date: 20210621
  Transmission Date: 20210717
  Serious: Yes (Other)
  Sender: FDA-Public Use
  Company Number: BR-NOVOPROD-820662

PATIENT
  Age: 78 Year
  Sex: Female
  Weight: 66.2 kg

DRUGS (3)
  1. GLIFAGE XR [Concomitant]
     Active Substance: METFORMIN HYDROCHLORIDE
     Dosage: 500 (UNITS NOT REPORTED)
     Route: 065
  2. XULTOPHY 100/3.6 [Suspect]
     Active Substance: INSULIN DEGLUDEC\LIRAGLUTIDE
     Indication: PRODUCT USED FOR UNKNOWN INDICATION
     Dosage: 16 IU
     Route: 065
  3. GLIFAGE XR [Concomitant]
     Active Substance: METFORMIN HYDROCHLORIDE
     Dosage: 1 G
     Route: 065

REACTIONS (4)
  - Urinary tract infection [Unknown]
  - Incisional hernia [Unknown]
  - Gamma-glutamyltransferase increased [Unknown]
  - Cholelithiasis [Unknown]
